FAERS Safety Report 23440617 (Version 1)
Quarter: 2024Q1

REPORT INFORMATION
  Report Type: Spontaneous
  Country: DE (occurrence: DE)
  Receive Date: 20240125
  Receipt Date: 20240125
  Transmission Date: 20240410
  Serious: Yes (Hospitalization, Other)
  Sender: FDA-Public Use
  Company Number: None

PATIENT
  Age: 27 Year
  Sex: Female

DRUGS (9)
  1. CLOZAPINE [Suspect]
     Active Substance: CLOZAPINE
     Indication: Product used for unknown indication
     Dosage: 125-0 MG P.O.
     Route: 048
     Dates: end: 20230426
  2. CLOZAPINE [Suspect]
     Active Substance: CLOZAPINE
     Dosage: 100 MG P.O.
     Route: 048
     Dates: start: 20230228, end: 20230301
  3. CLOZAPINE [Suspect]
     Active Substance: CLOZAPINE
     Dosage: 50 MG P.O.
     Route: 048
     Dates: start: 20230222, end: 20230222
  4. CLOZAPINE [Suspect]
     Active Substance: CLOZAPINE
     Dosage: 12,5 MG P.O.
     Route: 048
     Dates: start: 20230213, end: 20230216
  5. CLOZAPINE [Suspect]
     Active Substance: CLOZAPINE
     Dosage: 75 MG P.O.
     Route: 048
     Dates: start: 20230223, end: 20230227
  6. CLOZAPINE [Suspect]
     Active Substance: CLOZAPINE
     Dosage: 25 MG P.O.
     Route: 048
     Dates: start: 20230217, end: 20230221
  7. SERTRALINE HYDROCHLORIDE [Concomitant]
     Active Substance: SERTRALINE HYDROCHLORIDE
     Indication: Antidepressant therapy
     Dosage: 5 0 MG P.O.
     Route: 048
     Dates: start: 20230224, end: 20230327
  8. SERTRALINE HYDROCHLORIDE [Concomitant]
     Active Substance: SERTRALINE HYDROCHLORIDE
     Dosage: 25 MG P.O.
     Route: 048
     Dates: start: 20230221, end: 20230223
  9. SERTRALINE HYDROCHLORIDE [Concomitant]
     Active Substance: SERTRALINE HYDROCHLORIDE
     Dosage: 7 5 MG P.O. 28.03.2023 - B. A . W.
     Route: 048
     Dates: start: 20230328

REACTIONS (7)
  - Pericarditis [Recovered/Resolved]
  - Myocarditis [Recovered/Resolved]
  - Cardiac ventricular disorder [Unknown]
  - Blood creatine phosphokinase increased [Recovered/Resolved]
  - Blood creatine phosphokinase MB increased [Recovered/Resolved]
  - Myoglobin blood increased [Unknown]
  - Fatigue [Unknown]

NARRATIVE: CASE EVENT DATE: 20230101
